FAERS Safety Report 10206837 (Version 1)
Quarter: 2014Q2

REPORT INFORMATION
  Report Type: Spontaneous
  Country: US (occurrence: None)
  Receive Date: 20140528
  Receipt Date: 20140528
  Transmission Date: 20141212
  Serious: Yes (Other)
  Sender: FDA-Public Use
  Company Number: None

PATIENT
  Age: 65 Year
  Sex: Male
  Weight: 95.26 kg

DRUGS (1)
  1. LISINOPRIL [Suspect]
     Indication: BLOOD PRESSURE MANAGEMENT
     Route: 048
     Dates: start: 20130101, end: 20140101

REACTIONS (3)
  - Gout [None]
  - Product quality issue [None]
  - Product substitution issue [None]
